FAERS Safety Report 12756349 (Version 1)
Quarter: 2016Q3

REPORT INFORMATION
  Report Type: Spontaneous
  Country: US (occurrence: US)
  Receive Date: 20160916
  Receipt Date: 20160916
  Transmission Date: 20161109
  Serious: No
  Sender: FDA-Public Use
  Company Number: US-ACTELION-A-NJ2016-141913

PATIENT
  Age: 59 Year
  Sex: Female

DRUGS (2)
  1. UPTRAVI [Suspect]
     Active Substance: SELEXIPAG
     Indication: PULMONARY ARTERIAL HYPERTENSION
     Dosage: 200 MCG, BID
     Route: 048
     Dates: start: 20160825, end: 20160905
  2. ONDANSETRON [Concomitant]
     Active Substance: ONDANSETRON

REACTIONS (8)
  - Condition aggravated [Unknown]
  - Dyspepsia [Unknown]
  - Palpitations [Unknown]
  - Insomnia [Unknown]
  - Drug intolerance [Unknown]
  - Abdominal pain upper [Unknown]
  - Nausea [Unknown]
  - Arthralgia [Unknown]
